FAERS Safety Report 20695030 (Version 1)
Quarter: 2022Q2

REPORT INFORMATION
  Report Type: Spontaneous
  Country: US (occurrence: None)
  Receive Date: 20220408
  Receipt Date: 20220408
  Transmission Date: 20220720
  Serious: Yes (Disabling)
  Sender: FDA-Public Use
  Company Number: None

PATIENT
  Age: 87 Year
  Sex: Female
  Weight: 60.75 kg

DRUGS (6)
  1. MELOXICAM [Suspect]
     Active Substance: MELOXICAM
     Indication: Arthralgia
     Dosage: FREQUENCY : DAILY;?
     Route: 048
     Dates: start: 20190401
  2. SOTALOL [Concomitant]
     Active Substance: SOTALOL
  3. OXYBUTYNIN [Concomitant]
     Active Substance: OXYBUTYNIN
  4. VITAMINS [Concomitant]
     Active Substance: VITAMINS
  5. CRANBERRY [Concomitant]
     Active Substance: CRANBERRY
  6. Dandellion Extract [Concomitant]

REACTIONS (4)
  - Pollakiuria [None]
  - Rash [None]
  - Urinary tract infection [None]
  - Therapy change [None]

NARRATIVE: CASE EVENT DATE: 20190401
